FAERS Safety Report 6998252-7 (Version None)
Quarter: 2010Q3

REPORT INFORMATION
  Report Type: 
  Country: None (occurrence: None)
  Receive Date: 20100920
  Receipt Date: 20100611
  Transmission Date: 20110219
  Serious: No
  Sender: FDA-Public Use
  Company Number: US-ASTRAZENECA-2010SE25704

PATIENT
  Age: 56 Year
  Sex: Female
  Weight: 68 kg

DRUGS (7)
  1. SEROQUEL XR [Suspect]
     Indication: MOOD SWINGS
     Route: 048
     Dates: start: 20100501
  2. SEROQUEL XR [Suspect]
     Indication: DEPRESSION
     Route: 048
     Dates: start: 20100501
  3. ZOLOFT [Concomitant]
  4. LEVOTHYROXINE [Concomitant]
  5. NEURONTIN [Concomitant]
  6. AMBIEN [Concomitant]
     Indication: INSOMNIA
  7. KLONOPIN [Concomitant]
     Indication: ANXIETY

REACTIONS (3)
  - CHEST PAIN [None]
  - NAUSEA [None]
  - SOMNOLENCE [None]
